FAERS Safety Report 4315199-5 (Version None)
Quarter: 2004Q1

REPORT INFORMATION
  Report Type: 
  Country: None (occurrence: None)
  Receive Date: 20040310
  Receipt Date: 20040226
  Transmission Date: 20041129
  Serious: Yes (Hospitalization)
  Sender: FDA-Public Use
  Company Number: US-JNJFOC-20040200518

PATIENT
  Age: 31 Year
  Sex: Male
  Weight: 71 kg

DRUGS (5)
  1. REMICADE [Suspect]
     Indication: CROHN'S DISEASE
     Dosage: 5 MG/KG, INTRAVENOUS
     Route: 042
     Dates: start: 20030703
  2. REMICADE [Suspect]
     Indication: CROHN'S DISEASE
     Dosage: 5 MG/KG, INTRAVENOUS
     Route: 042
     Dates: start: 20030820
  3. MESALAMINE [Concomitant]
  4. PREDNISONE [Concomitant]
  5. OTHER THERAPEUTIC PRODUCTS [Concomitant]

REACTIONS (5)
  - ANOREXIA [None]
  - CROHN'S DISEASE [None]
  - DISEASE RECURRENCE [None]
  - RECTAL HAEMORRHAGE [None]
  - WEIGHT DECREASED [None]
